FAERS Safety Report 4680399-1 (Version None)
Quarter: 2005Q2

REPORT INFORMATION
  Report Type: 
  Country: None (occurrence: None)
  Receive Date: 20050531
  Receipt Date: 20050222
  Transmission Date: 20051028
  Serious: No
  Sender: FDA-Public Use
  Company Number: WAES 0502USA02736

PATIENT
  Age: 61 Year
  Sex: Male

DRUGS (6)
  1. ZETIA [Suspect]
     Indication: BLOOD CHOLESTEROL INCREASED
     Dosage: 10 MG/DAILY/PO
     Route: 048
     Dates: start: 20050113, end: 20050119
  2. ZETIA [Suspect]
     Indication: BLOOD CHOLESTEROL INCREASED
     Dosage: 10 MG/DAILY/PO
     Route: 048
     Dates: start: 20050130
  3. . [Concomitant]
  4. NEXIUM [Concomitant]
  5. PROSCAR [Concomitant]
  6. (THERAPY UNSPECIFIED) [Concomitant]

REACTIONS (1)
  - LIBIDO DECREASED [None]
